FAERS Safety Report 6634510-3 (Version None)
Quarter: 2010Q1

REPORT INFORMATION
  Report Type: 
  Country: None (occurrence: None)
  Receive Date: 20100311
  Receipt Date: 20100311
  Transmission Date: 20100710
  Serious: Yes (Other)
  Sender: FDA-Public Use
  Company Number: None

PATIENT
  Age: 60 Year
  Sex: Female
  Weight: 67.1324 kg

DRUGS (1)
  1. MAALOX [Suspect]
     Indication: DYSPEPSIA
     Dosage: 1 TABLESPOON Q 4 HRS PO
     Route: 048
     Dates: start: 20090515, end: 20090520

REACTIONS (4)
  - DISCOMFORT [None]
  - ECONOMIC PROBLEM [None]
  - FAECES DISCOLOURED [None]
  - PRODUCT PACKAGING ISSUE [None]
